FAERS Safety Report 9231345 (Version 2)
Quarter: 2013Q2

REPORT INFORMATION
  Report Type: Spontaneous
  Country: US (occurrence: US)
  Receive Date: 20130415
  Receipt Date: 20130415
  Transmission Date: 20140414
  Serious: Yes (Hospitalization, Other)
  Sender: FDA-Public Use
  Company Number: US-ELI_LILLY_AND_COMPANY-US_0506118155

PATIENT
  Age: 39 Year
  Sex: Female

DRUGS (6)
  1. FLUOXETINE HYDROCHLORIDE [Suspect]
     Dosage: UNK, UNKNOWN
     Route: 048
  2. DISULFIRAM [Concomitant]
     Dosage: UNK, UNKNOWN
  3. BUSPIRONE [Concomitant]
     Dosage: UNK, UNKNOWN
  4. CYCLOBENZAPRINE [Concomitant]
     Dosage: UNK, UNKNOWN
  5. FOLATE SODIUM [Concomitant]
     Dosage: UNK, UNKNOWN
  6. LINEZOLID [Concomitant]
     Indication: STAPHYLOCOCCUS TEST POSITIVE
     Dosage: UNK, UNKNOWN

REACTIONS (9)
  - Drug interaction [Unknown]
  - Serotonin syndrome [Unknown]
  - Pneumonia aspiration [Unknown]
  - Staphylococcus test positive [Unknown]
  - Respiratory depression [Recovering/Resolving]
  - Alcohol withdrawal syndrome [Recovering/Resolving]
  - Anticholinergic syndrome [Recovering/Resolving]
  - Unresponsive to stimuli [None]
  - Overdose [None]
